FAERS Safety Report 22152215 (Version 1)
Quarter: 2023Q1

REPORT INFORMATION
  Report Type: Spontaneous
  Country: CN (occurrence: CN)
  Receive Date: 20230329
  Receipt Date: 20230329
  Transmission Date: 20230417
  Serious: Yes (Life-Threatening)
  Sender: FDA-Public Use
  Company Number: CN-DSJP-DSJ-2023-111085

PATIENT
  Sex: Male

DRUGS (2)
  1. AMLODIPINE BESYLATE\OLMESARTAN MEDOXOMIL [Suspect]
     Active Substance: AMLODIPINE BESYLATE\OLMESARTAN MEDOXOMIL
     Indication: Hypertension
     Dosage: 1 DF, QD
     Route: 065
     Dates: start: 202203
  2. AMLODIPINE BESYLATE\OLMESARTAN MEDOXOMIL [Suspect]
     Active Substance: AMLODIPINE BESYLATE\OLMESARTAN MEDOXOMIL
     Dosage: 2 DF, QD (TOOK ONE MORE TABLET THIS DAY)
     Route: 065
     Dates: start: 20230224

REACTIONS (11)
  - Insomnia [Unknown]
  - Musculoskeletal stiffness [Unknown]
  - Vision blurred [Unknown]
  - Drug ineffective [Unknown]
  - Dizziness [Recovering/Resolving]
  - Chest discomfort [Recovering/Resolving]
  - Hypoaesthesia [Recovering/Resolving]
  - Abdominal discomfort [Recovering/Resolving]
  - Agitation [Unknown]
  - Ill-defined disorder [Unknown]
  - Blood pressure fluctuation [Unknown]

NARRATIVE: CASE EVENT DATE: 20230301
